FAERS Safety Report 21377791 (Version 2)
Quarter: 2022Q4

REPORT INFORMATION
  Report Type: Report from Study
  Country: NL (occurrence: NL)
  Receive Date: 20220926
  Receipt Date: 20221104
  Transmission Date: 20230113
  Serious: Yes (Hospitalization)
  Sender: FDA-Public Use
  Company Number: NL-ABBVIE-4129924

PATIENT
  Sex: Female

DRUGS (4)
  1. CARBIDOPA\LEVODOPA [Suspect]
     Active Substance: CARBIDOPA\LEVODOPA
     Indication: Parkinson^s disease
     Dosage: REMAINS AT 16 HOURS
     Route: 050
     Dates: start: 20190409
  2. CARBIDOPA\LEVODOPA [Suspect]
     Active Substance: CARBIDOPA\LEVODOPA
     Dosage: MD: 9.0ML, CD: 2.9ML/H, ED: 2.5ML, REMAINS AT 16 HOURS
     Route: 050
  3. BENSERAZIDE HYDROCHLORIDE\LEVODOPA [Concomitant]
     Active Substance: BENSERAZIDE HYDROCHLORIDE\LEVODOPA
     Indication: Parkinson^s disease
     Dosage: TIME INTERVAL: 0.33333333 DAYS
  4. OXAZEPAM [Concomitant]
     Active Substance: OXAZEPAM
     Indication: Product used for unknown indication
     Dosage: 2.5 MG
     Route: 048

REACTIONS (20)
  - Panic attack [Not Recovered/Not Resolved]
  - Fatigue [Not Recovered/Not Resolved]
  - Hypokinesia [Not Recovered/Not Resolved]
  - Stoma site erythema [Not Recovered/Not Resolved]
  - Feeling abnormal [Not Recovered/Not Resolved]
  - Bradykinesia [Not Recovered/Not Resolved]
  - Tension [Not Recovered/Not Resolved]
  - Dyskinesia [Not Recovered/Not Resolved]
  - Tremor [Not Recovered/Not Resolved]
  - Mental impairment [Not Recovered/Not Resolved]
  - Muscle spasms [Not Recovered/Not Resolved]
  - Stress [Not Recovered/Not Resolved]
  - Memory impairment [Not Recovered/Not Resolved]
  - Poor quality sleep [Not Recovered/Not Resolved]
  - On and off phenomenon [Not Recovered/Not Resolved]
  - Muscle rigidity [Not Recovered/Not Resolved]
  - Depression [Not Recovered/Not Resolved]
  - Reduced facial expression [Not Recovered/Not Resolved]
  - Posture abnormal [Not Recovered/Not Resolved]
  - Abnormal dreams [Not Recovered/Not Resolved]
